FAERS Safety Report 7647199-1 (Version None)
Quarter: 2011Q3

REPORT INFORMATION
  Report Type: 
  Country: None (occurrence: None)
  Receive Date: 20110801
  Receipt Date: 20110719
  Transmission Date: 20111222
  Serious: Yes (Hospitalization)
  Sender: FDA-Public Use
  Company Number: JP-ELI_LILLY_AND_COMPANY-JP201106000739

PATIENT
  Age: 36 Year
  Sex: Male
  Weight: 63 kg

DRUGS (10)
  1. SELBEX [Concomitant]
     Indication: PROPHYLAXIS
     Dosage: 50 MG, PRN
     Route: 048
     Dates: start: 20080903
  2. LENDORMIN [Concomitant]
     Indication: INSOMNIA
     Dosage: 0.5 MG, QD
     Route: 048
     Dates: start: 20080625
  3. LOXONIN [Concomitant]
     Indication: HEADACHE
     Dosage: 60 MG, PRN
     Route: 048
     Dates: start: 20080903
  4. ZYPREXA [Suspect]
     Dosage: 2.5 MG, QD
     Route: 048
     Dates: start: 20110517, end: 20110523
  5. ALPRAZOLAM [Concomitant]
     Indication: ANXIETY
     Dosage: 0.4 MG, QD
     Route: 048
     Dates: start: 20061213
  6. ZYPREXA [Suspect]
     Dosage: 5 MG, QD
     Route: 048
     Dates: start: 20110524, end: 20110531
  7. PAXIL [Concomitant]
     Indication: DEPRESSION
     Dosage: 10 MG, QD
     Route: 048
     Dates: start: 20070124
  8. EVAMYL [Concomitant]
     Indication: INSOMNIA
     Dosage: 1 MG, QD
     Route: 048
     Dates: start: 20070124
  9. DIAZEPAM [Concomitant]
     Indication: HEADACHE
     Dosage: 2 MG, PRN
     Route: 048
     Dates: start: 20080903
  10. ATARAX [Concomitant]
     Indication: DEPRESSION
     Dosage: 50 MG, QD
     Route: 048
     Dates: start: 20080206

REACTIONS (5)
  - WEIGHT INCREASED [None]
  - HYPOKALAEMIA [None]
  - OFF LABEL USE [None]
  - INCREASED APPETITE [None]
  - METABOLIC MYOPATHY [None]
